FAERS Safety Report 15790348 (Version 1)
Quarter: 2019Q1

REPORT INFORMATION
  Report Type: Spontaneous
  Country: US (occurrence: US)
  Receive Date: 20190104
  Receipt Date: 20190104
  Transmission Date: 20190417
  Serious: Yes (Other)
  Sender: FDA-Public Use
  Company Number: US-PFIZER INC-2018485571

PATIENT
  Age: 62 Year
  Sex: Female

DRUGS (7)
  1. ENBREL [Suspect]
     Active Substance: ETANERCEPT
     Dosage: 50 MG, QWK
     Route: 058
  2. XELJANZ [Suspect]
     Active Substance: TOFACITINIB CITRATE
     Indication: RHEUMATOID ARTHRITIS
     Dosage: UNK
     Route: 065
  3. ENBREL [Suspect]
     Active Substance: ETANERCEPT
     Indication: RHEUMATOID ARTHRITIS
     Dosage: 50 MG, QWK
     Route: 065
     Dates: start: 2000
  4. ENBREL [Suspect]
     Active Substance: ETANERCEPT
     Dosage: 50 MG, QWK
     Route: 058
  5. ENBREL [Suspect]
     Active Substance: ETANERCEPT
     Dosage: 50 MG, QWK
     Route: 058
  6. HUMIRA [Concomitant]
     Active Substance: ADALIMUMAB
     Indication: RHEUMATOID ARTHRITIS
     Dosage: UNK
  7. ENBREL [Suspect]
     Active Substance: ETANERCEPT
     Indication: RHEUMATOID ARTHRITIS
     Dosage: 50 MG, QWK
     Route: 058
     Dates: start: 2008

REACTIONS (20)
  - Basal cell carcinoma [Unknown]
  - Dermatitis acneiform [Recovering/Resolving]
  - Hypertension [Unknown]
  - Head injury [Unknown]
  - Blood cholesterol increased [Unknown]
  - Injection site erythema [Unknown]
  - Pain in extremity [Not Recovered/Not Resolved]
  - Fall [Unknown]
  - Laziness [Unknown]
  - Limb injury [Unknown]
  - Cyst [Recovered/Resolved]
  - Rosacea [Unknown]
  - Injection site pruritus [Unknown]
  - Rhinorrhoea [Unknown]
  - Breast cyst [Recovered/Resolved]
  - Tendonitis [Unknown]
  - Urinary tract infection [Unknown]
  - Injection site reaction [Unknown]
  - Joint injury [Recovering/Resolving]
  - Breast pain [Unknown]

NARRATIVE: CASE EVENT DATE: 2003
